FAERS Safety Report 4294473-5 (Version None)
Quarter: 2004Q1

REPORT INFORMATION
  Report Type: 
  Country: None (occurrence: None)
  Receive Date: 20040211
  Receipt Date: 20040130
  Transmission Date: 20041129
  Serious: Yes (Hospitalization)
  Sender: FDA-Public Use
  Company Number: US-JNJFOC-20040106064

PATIENT
  Age: 55 Year
  Sex: Female

DRUGS (2)
  1. REMICADE [Suspect]
     Indication: RHEUMATOID ARTHRITIS
     Dosage: INTRAVENOUS
     Route: 042
  2. LEFLUNOMIDE [Concomitant]

REACTIONS (3)
  - PANCREATITIS HAEMORRHAGIC [None]
  - SPLENIC VEIN THROMBOSIS [None]
  - SPLENOMEGALY [None]
